FAERS Safety Report 8908970 (Version 1)
Quarter: 2012Q4

REPORT INFORMATION
  Report Type: 
  Country: US (occurrence: US)
  Receive Date: 20121113
  Receipt Date: 20121113
  Transmission Date: 20130627
  Serious: No
  Sender: FDA-Public Use
  Company Number: US-AMGEN-USASP2012011644

PATIENT

DRUGS (8)
  1. ENBREL [Suspect]
     Indication: PRODUCT USED FOR UNKNOWN INDICATION
     Dosage: 25 mg, q2wk
  2. PREDNISONE [Concomitant]
     Dosage: 20 mg, UNK
  3. ARAVA [Concomitant]
     Dosage: 10 mg, UNK
  4. LISINOPRIL [Concomitant]
     Dosage: 2.5 mg, UNK
  5. CARVEDILOL [Concomitant]
     Dosage: 12.5 mg, UNK
  6. ASPIRIN [Concomitant]
     Dosage: 325 mg, UNK
  7. POTASSIUM [Concomitant]
     Dosage: 75 mg, UNK
  8. GLIPIZIDE W/METFORMIN HYDROCHLORIDE [Concomitant]
     Dosage: 10 mg, UNK

REACTIONS (3)
  - Injection site coldness [Unknown]
  - Injection site pruritus [Unknown]
  - Injection site erythema [Unknown]
